FAERS Safety Report 9201277 (Version 2)
Quarter: 2013Q2

REPORT INFORMATION
  Report Type: Report from Study
  Country: NL (occurrence: NL)
  Receive Date: 20130401
  Receipt Date: 20130618
  Transmission Date: 20140414
  Serious: Yes (Other)
  Sender: FDA-Public Use
  Company Number: PHHY2013NL030715

PATIENT
  Sex: Male

DRUGS (4)
  1. ZOMETA [Suspect]
     Indication: PROSTATE CANCER METASTATIC
     Dosage: 4 MG/100 ML, ONCE PER 28 DAYS
     Route: 042
  2. ZOMETA [Suspect]
     Dosage: 4 MG/100 ML, ONCE PER 28 DAYS
     Route: 042
     Dates: start: 20130117, end: 20130117
  3. ZOMETA [Suspect]
     Dosage: 4 MG/100 ML, ONCE PER 28 DAYS
     Route: 042
     Dates: start: 20130306, end: 20130306
  4. MICROSER [Concomitant]
     Dosage: UNK UKN, UNK

REACTIONS (1)
  - Terminal state [Not Recovered/Not Resolved]
